FAERS Safety Report 4837036-2 (Version None)
Quarter: 2005Q4

REPORT INFORMATION
  Report Type: 
  Country: None (occurrence: None)
  Receive Date: 20051124
  Receipt Date: 20051111
  Transmission Date: 20060501
  Serious: Yes (Life-Threatening, Other)
  Sender: FDA-Public Use
  Company Number: GB-JNJFOC-20050904714

PATIENT
  Sex: Female
  Weight: 71.9 kg

DRUGS (7)
  1. REMICADE [Suspect]
     Indication: RHEUMATOID ARTHRITIS
     Route: 042
  2. FOLIC ACID [Concomitant]
     Indication: RHEUMATOID ARTHRITIS
     Route: 048
  3. METHOTREXATE [Concomitant]
     Indication: RHEUMATOID ARTHRITIS
     Route: 065
  4. BENDROFLUAZIDE [Concomitant]
     Route: 048
  5. NABUMETONE [Concomitant]
     Indication: RHEUMATOID ARTHRITIS
     Route: 048
  6. CO-PRAXAMOL [Concomitant]
     Route: 065
  7. CO-PRAXAMOL [Concomitant]
     Route: 065

REACTIONS (1)
  - BREAST CANCER [None]
